FAERS Safety Report 8462790-0 (Version None)
Quarter: 2012Q2

REPORT INFORMATION
  Report Type: 
  Country: None (occurrence: None)
  Receive Date: 20120625
  Receipt Date: 20120615
  Transmission Date: 20120825
  Serious: Yes (Other)
  Sender: FDA-Public Use
  Company Number: US-ROCHE-1079101

PATIENT
  Age: 72 Year
  Sex: Male

DRUGS (3)
  1. VALIUM [Suspect]
     Indication: PANIC DISORDER
     Route: 065
  2. XANAX [Suspect]
     Indication: PANIC DISORDER
     Route: 065
  3. KLONOPIN [Suspect]
     Indication: PANIC DISORDER
     Route: 065

REACTIONS (5)
  - SYNCOPE [None]
  - LOSS OF CONSCIOUSNESS [None]
  - DEPRESSION [None]
  - ATRIAL FIBRILLATION [None]
  - HEART RATE IRREGULAR [None]
